FAERS Safety Report 10618667 (Version 9)
Quarter: 2016Q4

REPORT INFORMATION
  Report Type: Report from Study
  Country: CA (occurrence: CA)
  Receive Date: 20141202
  Receipt Date: 20161205
  Transmission Date: 20170206
  Serious: Yes (Life-Threatening, Other)
  Sender: FDA-Public Use
  Company Number: PHHY2013CA065916

PATIENT
  Sex: Male

DRUGS (9)
  1. TYLENOL [Concomitant]
     Active Substance: ACETAMINOPHEN
     Indication: HEADACHE
     Dosage: UNK UNK, PRN
     Route: 065
  2. TASIGNA [Suspect]
     Active Substance: NILOTINIB
     Dosage: 300 MG, QD
     Route: 048
  3. HYDROCHLOROTHIAZIDE. [Concomitant]
     Active Substance: HYDROCHLOROTHIAZIDE
     Indication: PRODUCT USED FOR UNKNOWN INDICATION
     Dosage: UNK
     Route: 065
     Dates: start: 20151005
  4. TASIGNA [Suspect]
     Active Substance: NILOTINIB
     Indication: CHRONIC MYELOID LEUKAEMIA
     Dosage: 300 MG, BID
     Route: 048
     Dates: start: 20130506
  5. TASIGNA [Suspect]
     Active Substance: NILOTINIB
     Dosage: 300 MG, BID
     Route: 048
     Dates: start: 20130615
  6. ALEVE [Concomitant]
     Active Substance: NAPROXEN SODIUM
     Indication: HEADACHE
     Dosage: UNK UNK, PRN
     Route: 065
  7. TASIGNA [Suspect]
     Active Substance: NILOTINIB
     Dosage: 300 MG, QD (ALL AT ONCE IN THE MORNING)
     Route: 048
  8. TASIGNA [Suspect]
     Active Substance: NILOTINIB
     Dosage: 300 MG, BID
     Route: 048
  9. ASA [Concomitant]
     Active Substance: ASPIRIN
     Indication: PRODUCT USED FOR UNKNOWN INDICATION
     Dosage: 81 MG, QD
     Route: 065

REACTIONS (40)
  - Miliaria [Unknown]
  - Solar lentigo [Unknown]
  - Night sweats [Not Recovered/Not Resolved]
  - Throat irritation [Unknown]
  - Blood cholesterol increased [Unknown]
  - Abnormal dreams [Unknown]
  - Fatigue [Unknown]
  - Cytogenetic analysis abnormal [Unknown]
  - Blood pressure increased [Unknown]
  - Pigmentation disorder [Unknown]
  - Rhinorrhoea [Unknown]
  - Hypoaesthesia [Unknown]
  - Hair growth abnormal [Unknown]
  - Dysgeusia [Unknown]
  - White blood cell count decreased [Unknown]
  - Therapeutic response unexpected [Unknown]
  - Rash [Unknown]
  - Dizziness [Unknown]
  - Pleurisy [Recovered/Resolved]
  - Cough [Unknown]
  - Headache [Unknown]
  - Dyspnoea [Recovered/Resolved]
  - Overweight [Unknown]
  - Neck pain [Unknown]
  - Gastrointestinal oedema [Unknown]
  - Sneezing [Unknown]
  - Decreased appetite [Unknown]
  - Concomitant disease aggravated [Unknown]
  - Pyrexia [Unknown]
  - Photosensitivity reaction [Recovering/Resolving]
  - Chest pain [Recovered/Resolved]
  - Nasopharyngitis [Recovered/Resolved]
  - Myalgia [Unknown]
  - Aortic dilatation [Unknown]
  - Back pain [Unknown]
  - Pruritus [Unknown]
  - Sleep disorder [Unknown]
  - Weight decreased [Unknown]
  - Feeling abnormal [Unknown]
  - Hypotonia [Unknown]
